FAERS Safety Report 10073987 (Version 1)
Quarter: 2014Q2

REPORT INFORMATION
  Report Type: Spontaneous
  Country: US (occurrence: US)
  Receive Date: 20140411
  Receipt Date: 20140411
  Transmission Date: 20141212
  Serious: No
  Sender: FDA-Public Use
  Company Number: US-SA-2013SA120491

PATIENT
  Sex: Female

DRUGS (1)
  1. ALLEGRA D [Suspect]
     Indication: MULTIPLE ALLERGIES
     Dosage: DOSAGE-180MG/240MG
     Route: 048

REACTIONS (2)
  - Feeling abnormal [Unknown]
  - Drug ineffective [Unknown]
